FAERS Safety Report 8997375 (Version 5)
Quarter: 2013Q3

REPORT INFORMATION
  Report Type: Report from Study
  Country: FR (occurrence: FR)
  Receive Date: 20130104
  Receipt Date: 20130708
  Transmission Date: 20140515
  Serious: Yes (Hospitalization)
  Sender: FDA-Public Use
  Company Number: FR-JNJFOC-20121213469

PATIENT
  Age: 64 Year
  Sex: Male
  Weight: 81.8 kg

DRUGS (6)
  1. RIVAROXABAN [Suspect]
     Indication: ATRIAL FIBRILLATION
     Route: 048
     Dates: start: 20121207
  2. RIVAROXABAN [Suspect]
     Indication: CEREBROVASCULAR ACCIDENT PROPHYLAXIS
     Route: 048
     Dates: start: 20121207
  3. AMIODARONE [Concomitant]
     Route: 065
     Dates: start: 20121206
  4. COLCHIMAX [Concomitant]
     Dosage: 1 COMPRIM
     Route: 065
     Dates: start: 20121208
  5. CARDENSIEL [Concomitant]
     Route: 065
  6. SOLUPRED [Concomitant]
     Route: 065
     Dates: start: 20121214, end: 20121225

REACTIONS (1)
  - Pericarditis [Recovering/Resolving]
